FAERS Safety Report 25532249 (Version 1)
Quarter: 2025Q3

REPORT INFORMATION
  Report Type: Spontaneous
  Country: US (occurrence: US)
  Receive Date: 20250709
  Receipt Date: 20250709
  Transmission Date: 20251021
  Serious: Yes (Other)
  Sender: COOPERSURGICAL
  Company Number: US-COOPERSURGICAL, INC.-2025CPS005250

PATIENT
  Age: 32 Year
  Sex: Female
  Weight: 79.365 kg

DRUGS (1)
  1. PARAGARD T 380A [Suspect]
     Active Substance: COPPER
     Indication: Contraception
     Route: 015
     Dates: start: 20140210

REACTIONS (18)
  - Surgery [Recovered/Resolved]
  - Device breakage [Recovered/Resolved]
  - Foreign body in reproductive tract [Recovered/Resolved]
  - Complication of device removal [Recovered/Resolved]
  - Inflammation [Unknown]
  - Procedural haemorrhage [Recovered/Resolved]
  - Procedural pain [Recovered/Resolved]
  - Abdominal distension [Recovered/Resolved]
  - Headache [Recovered/Resolved]
  - Emotional distress [Unknown]
  - General physical health deterioration [Unknown]
  - Loss of personal independence in daily activities [Unknown]
  - Abdominal pain [Not Recovered/Not Resolved]
  - Abnormal uterine bleeding [Not Recovered/Not Resolved]
  - Dyspareunia [Not Recovered/Not Resolved]
  - Pain [Unknown]
  - Intentional device use issue [Recovered/Resolved]
  - Off label use [Unknown]

NARRATIVE: CASE EVENT DATE: 20220801
